FAERS Safety Report 17076196 (Version 1)
Quarter: 2019Q4

REPORT INFORMATION
  Report Type: Spontaneous
  Country: RO (occurrence: RO)
  Receive Date: 20191126
  Receipt Date: 20191126
  Transmission Date: 20200122
  Serious: Yes (Death, Hospitalization)
  Sender: FDA-Public Use
  Company Number: RO-ABBVIE-19K-135-3013532-00

PATIENT
  Age: 79 Year
  Sex: Male

DRUGS (3)
  1. HUMIRA [Suspect]
     Active Substance: ADALIMUMAB
     Indication: RHEUMATOID ARTHRITIS
     Route: 058
     Dates: start: 20110921, end: 20191014
  2. LEFLUNOMIDE. [Concomitant]
     Active Substance: LEFLUNOMIDE
     Indication: RHEUMATOID ARTHRITIS
     Route: 048
     Dates: start: 200001, end: 201910
  3. METHOTREXATE. [Concomitant]
     Active Substance: METHOTREXATE
     Indication: RHEUMATOID ARTHRITIS
     Route: 058
     Dates: start: 200001, end: 201910

REACTIONS (9)
  - Cardio-respiratory arrest [Fatal]
  - Acute respiratory failure [Fatal]
  - Anaemia [Unknown]
  - Cardiac failure chronic [Unknown]
  - Sepsis [Fatal]
  - Pneumonia [Fatal]
  - Clostridium difficile colitis [Fatal]
  - Thrombocytopenia [Unknown]
  - Hypertension [Unknown]

NARRATIVE: CASE EVENT DATE: 20191008
